FAERS Safety Report 17671973 (Version 1)
Quarter: 2020Q2

REPORT INFORMATION
  Report Type: Spontaneous
  Country: CA (occurrence: CA)
  Receive Date: 20200415
  Receipt Date: 20200415
  Transmission Date: 20200713
  Serious: Yes (Other)
  Sender: FDA-Public Use
  Company Number: CA-TEVA-2020-CA-1222034

PATIENT
  Age: 9 Year
  Sex: Male
  Weight: 51 kg

DRUGS (7)
  1. HYDROCORTISONE. [Concomitant]
     Active Substance: HYDROCORTISONE
  2. METHOTREXATE. [Concomitant]
     Active Substance: METHOTREXATE
  3. VINCRISTINE SULFATE. [Suspect]
     Active Substance: VINCRISTINE SULFATE
     Indication: ACUTE LYMPHOCYTIC LEUKAEMIA
     Dosage: 1.1 MG
     Route: 042
  4. DOXORUBICIN HYDROCHLORIDE INJECTION [Concomitant]
     Active Substance: DOXORUBICIN HYDROCHLORIDE
  5. MERCAPTOPURINE. [Concomitant]
     Active Substance: MERCAPTOPURINE
  6. PEGASPARGASE [Concomitant]
     Active Substance: PEGASPARGASE
  7. CYTARABINE. [Concomitant]
     Active Substance: CYTARABINE

REACTIONS (12)
  - Gait disturbance [Unknown]
  - Neuralgia [Unknown]
  - Loss of consciousness [Unknown]
  - Musculoskeletal stiffness [Unknown]
  - Arthralgia [Unknown]
  - Joint stiffness [Unknown]
  - Orthostatic hypotension [Unknown]
  - Back pain [Unknown]
  - Ear pain [Unknown]
  - Motor dysfunction [Unknown]
  - Pain in jaw [Unknown]
  - Vertigo [Unknown]
